FAERS Safety Report 17074091 (Version 5)
Quarter: 2022Q3

REPORT INFORMATION
  Report Type: Spontaneous
  Country: GB (occurrence: GB)
  Receive Date: 20191126
  Receipt Date: 20220825
  Transmission Date: 20221027
  Serious: Yes (Hospitalization, Other)
  Sender: FDA-Public Use
  Company Number: None

PATIENT

DRUGS (27)
  1. PREDNISOLONE [Suspect]
     Active Substance: PREDNISOLONE
     Indication: Antiviral treatment
     Dosage: 5 MG, QD
     Route: 065
  2. PREDNISOLONE [Suspect]
     Active Substance: PREDNISOLONE
     Dosage: 8 MG, QD (8 MG DAILY; FOR 2 MONTHS)
     Route: 065
  3. PREDNISOLONE [Suspect]
     Active Substance: PREDNISOLONE
     Dosage: 15 MG, QD
     Route: 065
  4. HUMAN CYTOMEGALOVIRUS IMMUNE GLOBULIN [Suspect]
     Active Substance: HUMAN CYTOMEGALOVIRUS IMMUNE GLOBULIN
     Indication: Cytomegalovirus chorioretinitis
     Dosage: UNK UNK, WEEKLY
     Route: 065
  5. HUMAN CYTOMEGALOVIRUS IMMUNE GLOBULIN [Suspect]
     Active Substance: HUMAN CYTOMEGALOVIRUS IMMUNE GLOBULIN
     Indication: Cytomegalovirus viraemia
     Dosage: 2 MG/KG, WEEKLY (2 MG/KG FOR 4 WEEKS)
     Route: 065
  6. GANCICLOVIR [Suspect]
     Active Substance: GANCICLOVIR
     Indication: Cytomegalovirus chorioretinitis
     Dosage: UNK UNK, QD (WEEKLY LEFT EYE INTRAVITREAL GCV (2 MG/0.1 ML) FOR 4 WEEKS)
     Route: 042
  7. GANCICLOVIR [Suspect]
     Active Substance: GANCICLOVIR
     Indication: Cytomegalovirus viraemia
     Dosage: 2.5 MG/KG, QD (2.5 MG/KG, DAILY FOR 4 WEEKS)
     Route: 042
  8. GANCICLOVIR [Suspect]
     Active Substance: GANCICLOVIR
     Indication: Cytomegalovirus chorioretinitis
     Dosage: 2 MG, WEEKLY, WEEKLY LEFT EYE INTRAVITREAL GCV (2 MG/0.1 ML) FOR 4 WEEKS
     Route: 031
  9. GANCICLOVIR [Suspect]
     Active Substance: GANCICLOVIR
     Indication: Cytomegalovirus viraemia
  10. VALGANCICLOVIR [Suspect]
     Active Substance: VALGANCICLOVIR
     Indication: Cytomegalovirus viraemia
     Dosage: 450 MG, QD
     Route: 048
  11. VALGANCICLOVIR [Suspect]
     Active Substance: VALGANCICLOVIR
     Indication: Prophylaxis
     Dosage: 450 UG, QD
     Route: 065
  12. VALGANCICLOVIR [Suspect]
     Active Substance: VALGANCICLOVIR
     Indication: Cytomegalovirus infection reactivation
  13. SIROLIMUS [Suspect]
     Active Substance: SIROLIMUS
     Indication: Antiviral treatment
     Dosage: 1.5 MG, QD (1.5 MG DAILY)
     Route: 065
  14. LEFLUNOMIDE [Suspect]
     Active Substance: LEFLUNOMIDE
     Indication: Cytomegalovirus infection reactivation
     Dosage: UNK
     Route: 065
  15. FOSCARNET [Suspect]
     Active Substance: FOSCARNET
     Indication: Cytomegalovirus viraemia
     Dosage: UNK
     Route: 042
  16. FOSCARNET [Suspect]
     Active Substance: FOSCARNET
     Indication: Cytomegalovirus infection reactivation
     Dosage: 2.4 MG (2.4 MG/0.1 ML WAS INITIATED IN THE RIGHT THEN THE LEFT EYE AND REPEATED AT 1-2-WEEK INTERVAL
     Route: 031
  17. FOSCARNET [Suspect]
     Active Substance: FOSCARNET
     Indication: Cytomegalovirus chorioretinitis
  18. LAPINE T-LYMPHOCYTE IMMUNE GLOBULIN [Suspect]
     Active Substance: LAPINE T-LYMPHOCYTE IMMUNE GLOBULIN
     Indication: Immunosuppression
     Dosage: 1.5 MG/KG (.5 MILLIGRAM/KILOGRAM, FOR 3 DAYS)
     Route: 065
  19. CYCLOSPORINE [Suspect]
     Active Substance: CYCLOSPORINE
     Indication: Immunosuppressant drug therapy
     Dosage: UNK
     Route: 065
  20. CYCLOSPORINE [Suspect]
     Active Substance: CYCLOSPORINE
     Indication: Immunosuppression
  21. TACROLIMUS [Suspect]
     Active Substance: TACROLIMUS
     Indication: Antiviral treatment
     Dosage: 2 MG (2 MILLIGRAM, Q5D  )
     Route: 048
  22. TACROLIMUS [Suspect]
     Active Substance: TACROLIMUS
     Dosage: 4 MG, QD (2 MG TWICE DAILY  )
  23. AZATHIOPRINE [Suspect]
     Active Substance: AZATHIOPRINE
     Indication: Immunosuppression
     Dosage: UNK
     Route: 065
  24. AZATHIOPRINE [Suspect]
     Active Substance: AZATHIOPRINE
     Dosage: UNK
     Route: 065
  25. METHYLPREDNISOLONE [Suspect]
     Active Substance: METHYLPREDNISOLONE
     Indication: Immunosuppressant drug therapy
     Dosage: UNK
     Route: 042
  26. GANCICLOVIR [Suspect]
     Active Substance: GANCICLOVIR
     Indication: Cytomegalovirus viraemia
     Dosage: 450 UG, QD
     Route: 048
  27. GANCICLOVIR [Suspect]
     Active Substance: GANCICLOVIR
     Indication: Cytomegalovirus chorioretinitis
     Dosage: 450 MG, QD
     Route: 048

REACTIONS (12)
  - Visual impairment [Not Recovered/Not Resolved]
  - Retinal scar [Recovered/Resolved]
  - Retinal detachment [Recovered/Resolved]
  - Cytomegalovirus chorioretinitis [Recovered/Resolved]
  - Nephropathy toxic [Recovered/Resolved]
  - Cytomegalovirus viraemia [Recovered/Resolved]
  - Cytomegalovirus infection reactivation [Recovered/Resolved]
  - Renal impairment [Recovered/Resolved]
  - Pneumonia cytomegaloviral [Recovered/Resolved]
  - Drug resistance [Recovered/Resolved]
  - Product use issue [Recovered/Resolved]
  - Off label use [Unknown]
